FAERS Safety Report 10787831 (Version 2)
Quarter: 2015Q1

REPORT INFORMATION
  Report Type: Report from Study
  Country: JP (occurrence: JP)
  Receive Date: 20150212
  Receipt Date: 20150310
  Transmission Date: 20150721
  Serious: Yes (Other)
  Sender: FDA-Public Use
  Company Number: JP-ROCHE-1537061

PATIENT
  Age: 67 Year
  Sex: Female
  Weight: 71 kg

DRUGS (12)
  1. KREMEZIN [Concomitant]
     Active Substance: ACTIVATED CHARCOAL
     Route: 048
     Dates: end: 20130721
  2. METHOXY POLYETHYLENE GLYCOL-EPOETIN BETA [Suspect]
     Active Substance: PEGZEREPOETIN ALFA
     Indication: NEPHROGENIC ANAEMIA
     Route: 058
     Dates: start: 20130603, end: 20130617
  3. METHOXY POLYETHYLENE GLYCOL-EPOETIN BETA [Suspect]
     Active Substance: PEGZEREPOETIN ALFA
     Indication: NEPHROGENIC ANAEMIA
     Route: 058
     Dates: start: 20130701, end: 20130701
  4. LIVALO [Concomitant]
     Active Substance: PITAVASTATIN CALCIUM
     Route: 048
  5. MICARDIS [Concomitant]
     Active Substance: TELMISARTAN
     Route: 048
     Dates: end: 20130602
  6. NIFEDIPINE CR [Concomitant]
     Active Substance: NIFEDIPINE
     Route: 048
     Dates: end: 20130602
  7. GLUFAST [Concomitant]
     Active Substance: MITIGLINIDE
     Route: 048
     Dates: end: 20130602
  8. METHOXY POLYETHYLENE GLYCOL-EPOETIN BETA [Suspect]
     Active Substance: PEGZEREPOETIN ALFA
     Indication: NEPHROGENIC ANAEMIA
     Route: 058
     Dates: start: 20121029, end: 20121126
  9. METHOXY POLYETHYLENE GLYCOL-EPOETIN BETA [Suspect]
     Active Substance: PEGZEREPOETIN ALFA
     Indication: NEPHROGENIC ANAEMIA
     Route: 058
     Dates: start: 20121226, end: 20130422
  10. RABEPRAZOLE SODIUM. [Concomitant]
     Active Substance: RABEPRAZOLE SODIUM
     Route: 048
     Dates: end: 20130602
  11. ALFAROL [Concomitant]
     Active Substance: ALFACALCIDOL
     Route: 048
     Dates: start: 20130603
  12. EQUA [Concomitant]
     Active Substance: VILDAGLIPTIN
     Route: 048
     Dates: start: 20130603

REACTIONS (9)
  - Hypertension [Recovering/Resolving]
  - Hypoalbuminaemia [Recovering/Resolving]
  - Platelet count decreased [Unknown]
  - Renal impairment [Unknown]
  - Hyperkalaemia [Recovering/Resolving]
  - Hyperphosphataemia [Recovered/Resolved]
  - Malignant hypertension [Recovered/Resolved]
  - Metabolic acidosis [Recovered/Resolved]
  - Abdominal discomfort [Recovered/Resolved]

NARRATIVE: CASE EVENT DATE: 20121126
